FAERS Safety Report 4559999-5 (Version None)
Quarter: 2005Q1

REPORT INFORMATION
  Report Type: 
  Country: None (occurrence: None)
  Receive Date: 20050125
  Receipt Date: 20050110
  Transmission Date: 20050727
  Serious: Yes (Hospitalization, Other)
  Sender: FDA-Public Use
  Company Number: FR-RB-1216-2005

PATIENT
  Age: 29 Year
  Sex: Male

DRUGS (1)
  1. BUPRENORPHINE HCL [Suspect]
     Indication: POLYSUBSTANCE DEPENDENCE
     Route: 042
     Dates: start: 20040101

REACTIONS (7)
  - ABNORMAL BEHAVIOUR [None]
  - APATHY [None]
  - ENDOCARDITIS [None]
  - INFECTED SKIN ULCER [None]
  - INTENTIONAL MISUSE [None]
  - STAPHYLOCOCCAL INFECTION [None]
  - TRICUSPID VALVE DISEASE [None]
